FAERS Safety Report 4922606-3 (Version None)
Quarter: 2006Q1

REPORT INFORMATION
  Report Type: 
  Country: None (occurrence: None)
  Receive Date: 20060224
  Receipt Date: 20060221
  Transmission Date: 20060701
  Serious: Yes (Other)
  Sender: FDA-Public Use
  Company Number: DE-GLAXOSMITHKLINE-D0048799A

PATIENT
  Sex: Female

DRUGS (4)
  1. REQUIP [Suspect]
     Route: 048
  2. MADOPAR [Concomitant]
     Route: 065
  3. AMANTADINE HCL [Concomitant]
     Route: 065
  4. MAO INHIBITORS [Concomitant]
     Route: 065

REACTIONS (1)
  - ANAEMIA HAEMOLYTIC AUTOIMMUNE [None]
